FAERS Safety Report 13880592 (Version 1)
Quarter: 2017Q3

REPORT INFORMATION
  Report Type: Other
  Country: FR (occurrence: FR)
  Receive Date: 20170818
  Receipt Date: 20170818
  Transmission Date: 20171127
  Serious: Yes (Other)
  Sender: FDA-Public Use
  Company Number: FR-AJANTA PHARMA USA INC.-2024771

PATIENT
  Age: 47 Year
  Sex: Male

DRUGS (1)
  1. OLANZAPINE (ANDA 206711) [Suspect]
     Active Substance: OLANZAPINE
     Indication: SCHIZOPHRENIA
     Route: 030

REACTIONS (1)
  - Post-injection delirium sedation syndrome [Recovered/Resolved with Sequelae]

NARRATIVE: CASE EVENT DATE: 20170521
